FAERS Safety Report 6476027-5 (Version None)
Quarter: 2009Q4

REPORT INFORMATION
  Report Type: 
  Country: None (occurrence: None)
  Receive Date: 20091204
  Receipt Date: 20091125
  Transmission Date: 20100525
  Serious: Yes (Other)
  Sender: FDA-Public Use
  Company Number: US-JNJCH-2009030909

PATIENT
  Age: 69 Year
  Sex: Male
  Weight: 95.3 kg

DRUGS (4)
  1. ROGAINE [Suspect]
     Indication: ALOPECIA
     Dosage: TEXT:1/2 CAPFUL ONCE OR TWICE DAILY
     Route: 061
  2. VYTORIN [Concomitant]
     Indication: BLOOD CHOLESTEROL
     Dosage: TEXT:UNSPECIFIED
     Route: 065
  3. METOPROLOL [Concomitant]
     Indication: CARDIAC DISORDER
     Dosage: TEXT:UNSPECIFIED
     Route: 065
  4. DRUG, UNSPECIFIED [Concomitant]
     Indication: CARDIAC DISORDER
     Dosage: TEXT:UNSPECIFIED
     Route: 065

REACTIONS (2)
  - DYSPNOEA [None]
  - EYE IRRITATION [None]
